FAERS Safety Report 16735705 (Version 3)
Quarter: 2021Q2

REPORT INFORMATION
  Report Type: Spontaneous
  Country: US (occurrence: US)
  Receive Date: 20190823
  Receipt Date: 20210427
  Transmission Date: 20210716
  Serious: No
  Sender: FDA-Public Use
  Company Number: US-PFIZER INC-2019316509

PATIENT
  Age: 34 Year
  Sex: Male

DRUGS (3)
  1. SOMAVERT [Suspect]
     Active Substance: PEGVISOMANT
     Indication: ACROMEGALY
     Dosage: 30 MG, 2X/WEEK (30MG BIW (TWICE A WEEK)
     Route: 058
     Dates: start: 20150731
  2. SOMAVERT [Suspect]
     Active Substance: PEGVISOMANT
     Indication: GIGANTISM
     Dosage: 10 MG, UNK
     Dates: start: 20150805
  3. SOMAVERT [Suspect]
     Active Substance: PEGVISOMANT
     Dosage: 90 MG, WEEKLY (30MG SUBCUTANEOUS THREE TIMES A WEEK)
     Route: 058
     Dates: start: 20190301

REACTIONS (3)
  - Product dose omission issue [Not Recovered/Not Resolved]
  - Off label use [Unknown]
  - Drug ineffective [Unknown]

NARRATIVE: CASE EVENT DATE: 20150731
